FAERS Safety Report 9289181 (Version 2)
Quarter: 2013Q2

REPORT INFORMATION
  Report Type: Spontaneous
  Country: FR (occurrence: FR)
  Receive Date: 20130514
  Receipt Date: 20130514
  Transmission Date: 20140414
  Serious: Yes (Disabling, Other)
  Sender: FDA-Public Use
  Company Number: FR-ACTELION-A-CH2006-12481

PATIENT
  Age: 33 Year
  Sex: Female
  Weight: 51 kg

DRUGS (5)
  1. TRACLEER [Suspect]
     Indication: SCLERODERMA
     Dosage: 125 MG, BID
     Route: 048
  2. TRACLEER [Interacting]
     Dosage: UNK MG, UNK
     Route: 048
  3. MICROVAL [Interacting]
     Dates: end: 20060613
  4. MOPRAL [Suspect]
  5. ASPEGIC BABY [Suspect]
     Dates: start: 20060613, end: 20061015

REACTIONS (5)
  - Pregnancy on oral contraceptive [Unknown]
  - Therapeutic response decreased [Recovered/Resolved with Sequelae]
  - Drug interaction [Unknown]
  - Caesarean section [Recovered/Resolved with Sequelae]
  - Exposure during pregnancy [None]
